FAERS Safety Report 25022102 (Version 1)
Quarter: 2025Q1

REPORT INFORMATION
  Report Type: Spontaneous
  Country: CN (occurrence: CN)
  Receive Date: 20250228
  Receipt Date: 20250228
  Transmission Date: 20250409
  Serious: Yes (Hospitalization, Other)
  Sender: NOVO NORDISK
  Company Number: CN-NOVOPROD-1374070

PATIENT
  Age: 74 Year
  Sex: Female
  Weight: 60 kg

DRUGS (2)
  1. NOVOLIN R [Suspect]
     Active Substance: INSULIN HUMAN
     Indication: Type 2 diabetes mellitus
     Dates: start: 20040729
  2. DENDROBIUM NOBILE [Concomitant]
     Route: 048

REACTIONS (5)
  - Urinary tract infection [Unknown]
  - Chronic kidney disease [Unknown]
  - Macular rupture [Unknown]
  - Cardiac failure [Unknown]
  - Vision blurred [Unknown]

NARRATIVE: CASE EVENT DATE: 20230901
